FAERS Safety Report 16535120 (Version 2)
Quarter: 2019Q4

REPORT INFORMATION
  Report Type: Spontaneous
  Country: US (occurrence: US)
  Receive Date: 20190705
  Receipt Date: 20191002
  Transmission Date: 20200122
  Serious: No
  Sender: FDA-Public Use
  Company Number: US-GW PHARMA-201905USGW1316

PATIENT

DRUGS (5)
  1. FYCOMPA [Concomitant]
     Active Substance: PERAMPANEL
     Indication: EPILEPSY
     Dosage: UNK
     Route: 065
  2. EPIDIOLEX [Suspect]
     Active Substance: CANNABIDIOL
     Indication: EPILEPSY
     Dosage: 90 MILLIGRAM, BID FOR 2 WEEKS
     Route: 048
     Dates: start: 201904, end: 20190428
  3. SABRIL [Concomitant]
     Active Substance: VIGABATRIN
     Indication: EPILEPSY
     Dosage: UNK
     Route: 065
  4. ZONISAMIDE. [Concomitant]
     Active Substance: ZONISAMIDE
     Indication: EPILEPSY
     Dosage: UNK
     Route: 065
  5. EPIDIOLEX [Suspect]
     Active Substance: CANNABIDIOL
     Indication: MUSCLE SPASMS
     Dosage: 180 MILLIGRAM, BID 1 WEEK
     Route: 048
     Dates: start: 20190429, end: 2019

REACTIONS (15)
  - Tympanic membrane perforation [Unknown]
  - Aggression [Unknown]
  - Crying [Unknown]
  - Psychiatric symptom [Unknown]
  - Anxiety [Unknown]
  - Screaming [Unknown]
  - Deafness [Unknown]
  - Insomnia [Unknown]
  - Product use in unapproved indication [Not Recovered/Not Resolved]
  - Drug hypersensitivity [Unknown]
  - Abnormal behaviour [Unknown]
  - Product taste abnormal [Unknown]
  - Seizure [Unknown]
  - Mood altered [Unknown]
  - Diarrhoea [Unknown]

NARRATIVE: CASE EVENT DATE: 2019
